FAERS Safety Report 17388727 (Version 3)
Quarter: 2020Q4

REPORT INFORMATION
  Report Type: Spontaneous
  Country: NO (occurrence: NO)
  Receive Date: 20200207
  Receipt Date: 20201111
  Transmission Date: 20210113
  Serious: Yes (Life-Threatening, Hospitalization)
  Sender: FDA-Public Use
  Company Number: NO-ROCHE-2536287

PATIENT
  Sex: Female
  Weight: 70 kg

DRUGS (11)
  1. PREDNISOLONE. [Concomitant]
     Active Substance: PREDNISOLONE
     Dosage: X1
  2. VITAMIN D2 [Concomitant]
     Active Substance: ERGOCALCIFEROL
     Dosage: X1
  3. MAGNESIUM CLOFIBRATE [Concomitant]
     Dosage: X2
  4. LAMICTAL [Concomitant]
     Active Substance: LAMOTRIGINE
     Dosage: X2
  5. CELLCEPT [Suspect]
     Active Substance: MYCOPHENOLATE MOFETIL\MYCOPHENOLATE MOFETIL HYDROCHLORIDE
     Indication: IMMUNOSUPPRESSANT DRUG THERAPY
     Dosage: X2
     Route: 048
  6. CELLCEPT [Suspect]
     Active Substance: MYCOPHENOLATE MOFETIL\MYCOPHENOLATE MOFETIL HYDROCHLORIDE
     Indication: IMMUNOSUPPRESSANT DRUG THERAPY
     Dosage: 60G
     Route: 065
  7. ALBYL-E [Concomitant]
     Active Substance: ASPIRIN\MAGNESIUM OXIDE
     Dosage: X1
  8. CALCIUM [Concomitant]
     Active Substance: CALCIUM
     Dosage: X1
  9. FERRO-RETARD [Concomitant]
     Dosage: X1
  10. PROGRAF [Concomitant]
     Active Substance: TACROLIMUS
     Dosage: X2
  11. SOMAC [Concomitant]
     Active Substance: PANTOPRAZOLE SODIUM
     Dosage: X1

REACTIONS (4)
  - Suicide attempt [Recovered/Resolved]
  - Vomiting [Recovered/Resolved]
  - Abdominal pain upper [Recovered/Resolved]
  - Overdose [Unknown]
